FAERS Safety Report 25410591 (Version 1)
Quarter: 2025Q2

REPORT INFORMATION
  Report Type: Report from Study
  Country: NZ (occurrence: NZ)
  Receive Date: 20250609
  Receipt Date: 20250609
  Transmission Date: 20250716
  Serious: Yes (Hospitalization, Other)
  Sender: ASTELLAS
  Company Number: NZ-ASTELLAS-2025-AER-030650

PATIENT
  Age: 61 Year
  Sex: Female

DRUGS (5)
  1. TACROLIMUS [Suspect]
     Active Substance: TACROLIMUS
     Indication: Liver transplant
     Route: 065
     Dates: start: 2015, end: 2016
  2. TACROLIMUS [Suspect]
     Active Substance: TACROLIMUS
     Route: 065
     Dates: start: 2016
  3. PREDNISONE [Concomitant]
     Active Substance: PREDNISONE
     Indication: Liver transplant
     Route: 065
     Dates: start: 2015, end: 2016
  4. PREDNISONE [Concomitant]
     Active Substance: PREDNISONE
     Route: 065
     Dates: start: 2016
  5. MYCOPHENOLIC ACID [Concomitant]
     Active Substance: MYCOPHENOLIC ACID
     Indication: Liver transplant
     Route: 065
     Dates: start: 2015, end: 2016

REACTIONS (7)
  - Cytomegalovirus infection reactivation [Unknown]
  - Dermatitis psoriasiform [Unknown]
  - Cytomegalovirus infection [Unknown]
  - Cytomegalovirus colitis [Unknown]
  - Lichenoid keratosis [Unknown]
  - Cystitis escherichia [Unknown]
  - Klebsiella bacteraemia [Unknown]

NARRATIVE: CASE EVENT DATE: 20160101
